FAERS Safety Report 11691718 (Version 2)
Quarter: 2015Q4

REPORT INFORMATION
  Report Type: Report from Study
  Country: BR (occurrence: BR)
  Receive Date: 20151103
  Receipt Date: 20151106
  Transmission Date: 20160304
  Serious: Yes (Disabling, Other)
  Sender: FDA-Public Use
  Company Number: BR-ABBVIE-15K-020-1490970-00

PATIENT
  Sex: Male

DRUGS (1)
  1. HUMIRA [Suspect]
     Active Substance: ADALIMUMAB
     Indication: ANKYLOSING SPONDYLITIS
     Route: 058
     Dates: start: 2014, end: 201505

REACTIONS (13)
  - Blindness [Unknown]
  - Tuberculosis [Unknown]
  - Lung disorder [Unknown]
  - Tooth infection [Unknown]
  - Orchitis [Unknown]
  - General physical health deterioration [Unknown]
  - Pneumonia [Unknown]
  - Lung infection [Unknown]
  - Testis cancer [Unknown]
  - Lung neoplasm malignant [Unknown]
  - Gingivitis [Unknown]
  - Eye infection [Unknown]
  - Pharyngitis [Unknown]

NARRATIVE: CASE EVENT DATE: 2015
